FAERS Safety Report 4357340-4 (Version None)
Quarter: 2004Q2

REPORT INFORMATION
  Report Type: 
  Country: None (occurrence: None)
  Receive Date: 20040513
  Receipt Date: 20040429
  Transmission Date: 20050107
  Serious: Yes (Life-Threatening, Hospitalization)
  Sender: FDA-Public Use
  Company Number: GB-BRISTOL-MYERS SQUIBB COMPANY-12584975

PATIENT
  Age: 62 Year
  Sex: Male
  Weight: 56 kg

DRUGS (4)
  1. CYCLOPHOSPHAMIDE [Suspect]
     Indication: BREAST CANCER
     Dosage: THERAPY DATES: 13-FEB-2004 TO UNKNOWN
     Route: 042
     Dates: start: 20040213, end: 20040213
  2. METHOTREXATE [Suspect]
     Indication: BREAST CANCER
     Dates: start: 20040213, end: 20040213
  3. FLUOROURACIL [Suspect]
     Indication: BREAST CANCER
  4. LANSOPRAZOLE [Concomitant]
     Indication: GASTROOESOPHAGEAL REFLUX DISEASE
     Route: 048

REACTIONS (2)
  - NEUTROPENIC SEPSIS [None]
  - URINARY TRACT INFECTION [None]
